FAERS Safety Report 6796151-7 (Version None)
Quarter: 2010Q2

REPORT INFORMATION
  Report Type: 
  Country: None (occurrence: None)
  Receive Date: 20100625
  Receipt Date: 20100614
  Transmission Date: 20101027
  Serious: Yes (Hospitalization)
  Sender: FDA-Public Use
  Company Number: PHHY2010JP38566

PATIENT
  Age: 23 Year
  Sex: Male
  Weight: 42.2 kg

DRUGS (4)
  1. BASILIXIMAB [Suspect]
     Indication: RENAL TRANSPLANT
  2. TACROLIMUS [Suspect]
     Indication: RENAL TRANSPLANT
  3. MYCOPHENOLATE MOFETIL [Suspect]
     Indication: RENAL TRANSPLANT
  4. METHYLPREDNISOLONE [Suspect]
     Indication: RENAL TRANSPLANT

REACTIONS (12)
  - ANAEMIA [None]
  - BLOOD CREATININE INCREASED [None]
  - COMPLICATIONS OF TRANSPLANTED KIDNEY [None]
  - CYTOMEGALOVIRUS INFECTION [None]
  - FOCAL SEGMENTAL GLOMERULOSCLEROSIS [None]
  - HYPOTENSION [None]
  - KIDNEY FIBROSIS [None]
  - NEPHROSCLEROSIS [None]
  - RENAL DISORDER [None]
  - RENAL TUBULAR ATROPHY [None]
  - RENAL TUBULAR NECROSIS [None]
  - TRANSFUSION [None]
